FAERS Safety Report 5827665-1 (Version None)
Quarter: 2008Q3

REPORT INFORMATION
  Report Type: 
  Country: None (occurrence: None)
  Receive Date: 20080728
  Receipt Date: 20080715
  Transmission Date: 20090109
  Serious: Yes (Other)
  Sender: FDA-Public Use
  Company Number: 230053M08GBR

PATIENT
  Sex: Female

DRUGS (5)
  1. REBIF [Suspect]
  2. ACETYLSALICYLIC ACID SRT [Concomitant]
  3. CITALOPRAM  /00582601/ [Concomitant]
  4. GABAPENTIN [Concomitant]
  5. SENNA ALEXANDRINA [Concomitant]

REACTIONS (1)
  - CARDIOMYOPATHY [None]
